FAERS Safety Report 15131419 (Version 5)
Quarter: 2018Q4

REPORT INFORMATION
  Report Type: Spontaneous
  Country: US (occurrence: US)
  Receive Date: 20180711
  Receipt Date: 20181206
  Transmission Date: 20190204
  Serious: No
  Sender: FDA-Public Use
  Company Number: US-ACTELION-A-NJ2018-174326

PATIENT
  Age: 56 Year
  Sex: Female
  Weight: 58.96 kg

DRUGS (2)
  1. VELETRI [Suspect]
     Active Substance: EPOPROSTENOL
     Indication: PULMONARY ARTERIAL HYPERTENSION
     Dosage: 20 NG/KG, PER MIN
     Route: 042
  2. WARFARIN [Concomitant]
     Active Substance: WARFARIN

REACTIONS (11)
  - Dizziness [Unknown]
  - Pruritus [Unknown]
  - Neck pain [Recovered/Resolved]
  - Rhinorrhoea [Unknown]
  - Food allergy [Unknown]
  - Hypersensitivity [Unknown]
  - Urticaria [Unknown]
  - Chest pain [Recovered/Resolved]
  - Headache [Unknown]
  - Pain in jaw [Recovered/Resolved]
  - Fatigue [Recovered/Resolved]

NARRATIVE: CASE EVENT DATE: 201806
